FAERS Safety Report 4778455-2 (Version None)
Quarter: 2005Q3

REPORT INFORMATION
  Report Type: 
  Country: None (occurrence: None)
  Receive Date: 20050923
  Receipt Date: 20050923
  Transmission Date: 20060218
  Serious: Yes (Hospitalization)
  Sender: FDA-Public Use
  Company Number: None

PATIENT
  Sex: Male
  Weight: 77 kg

DRUGS (1)
  1. TEQUIN [Suspect]
     Indication: URINARY TRACT INFECTION
     Dosage: 400 MG
     Dates: start: 20050425, end: 20050428

REACTIONS (1)
  - NEPHROPATHY [None]
